FAERS Safety Report 21720435 (Version 1)
Quarter: 2022Q4

REPORT INFORMATION
  Report Type: Spontaneous
  Country: CN (occurrence: CN)
  Receive Date: 20221213
  Receipt Date: 20221213
  Transmission Date: 20230112
  Serious: Yes (Other)
  Sender: FDA-Public Use
  Company Number: CN-STRIDES ARCOLAB LIMITED-2022SP016658

PATIENT
  Age: 40 Year
  Sex: Male

DRUGS (2)
  1. LAMIVUDINE [Suspect]
     Active Substance: LAMIVUDINE
     Indication: Antiretroviral therapy
     Dosage: UNK
     Route: 065
  2. DOLUTEGRAVIR [Suspect]
     Active Substance: DOLUTEGRAVIR
     Indication: Antiretroviral therapy
     Dosage: UNK
     Route: 065

REACTIONS (4)
  - Necrotising retinitis [Unknown]
  - Retinal detachment [Unknown]
  - Immune reconstitution inflammatory syndrome [Recovered/Resolved]
  - Cytomegalovirus chorioretinitis [Recovered/Resolved]
